APPROVED DRUG PRODUCT: VICODIN
Active Ingredient: ACETAMINOPHEN; HYDROCODONE BITARTRATE
Strength: 500MG;5MG
Dosage Form/Route: TABLET;ORAL
Application: A088058 | Product #001
Applicant: ABBVIE INC
Approved: Jan 7, 1983 | RLD: No | RS: No | Type: DISCN